FAERS Safety Report 4620553-8 (Version None)
Quarter: 2005Q1

REPORT INFORMATION
  Report Type: 
  Country: None (occurrence: None)
  Receive Date: 20050324
  Receipt Date: 20050310
  Transmission Date: 20050727
  Serious: Yes (Other)
  Sender: FDA-Public Use
  Company Number: US014795

PATIENT
  Age: 47 Year
  Sex: Female

DRUGS (10)
  1. GABITRIL [Suspect]
     Indication: FIBROMYALGIA
     Dosage: 2 MG QHS ORAL
     Route: 048
     Dates: start: 20040701, end: 20040101
  2. GABITRIL [Suspect]
     Indication: NECK PAIN
     Dosage: 2 MG QHS ORAL
     Route: 048
     Dates: start: 20040701, end: 20040101
  3. GABITRIL [Suspect]
     Indication: FIBROMYALGIA
     Dosage: 6 MG QHS ORAL
     Route: 048
     Dates: start: 20040801, end: 20040101
  4. GABITRIL [Suspect]
     Indication: NECK PAIN
     Dosage: 6 MG QHS ORAL
     Route: 048
     Dates: start: 20040801, end: 20040101
  5. GABITRIL [Suspect]
     Indication: FIBROMYALGIA
     Dosage: 12 MG QHS ORAL
     Route: 048
     Dates: start: 20040915
  6. GABITRIL [Suspect]
     Indication: NECK PAIN
     Dosage: 12 MG QHS ORAL
     Route: 048
     Dates: start: 20040915
  7. METHADONE HCL [Concomitant]
  8. KLONOPIN [Concomitant]
  9. VICODIN [Concomitant]
  10. MENEST  MONARCH [Concomitant]

REACTIONS (2)
  - CEREBRAL DISORDER [None]
  - GRAND MAL CONVULSION [None]
